FAERS Safety Report 5034929-0 (Version None)
Quarter: 2006Q2

REPORT INFORMATION
  Report Type: 
  Country: None (occurrence: None)
  Receive Date: 20060622
  Receipt Date: 20060609
  Transmission Date: 20061013
  Serious: Yes (Hospitalization)
  Sender: FDA-Public Use
  Company Number: S06-AUT-02401-01

PATIENT
  Age: 74 Year
  Sex: Male

DRUGS (1)
  1. ESCITALOPRAM OXALATE [Suspect]
     Indication: DYSTHYMIC DISORDER
     Dosage: 5 MG QD PO
     Route: 048
     Dates: start: 20060328, end: 20060505

REACTIONS (3)
  - ABDOMINAL PAIN [None]
  - MEGACOLON [None]
  - SUBILEUS [None]
